FAERS Safety Report 6268952-5 (Version None)
Quarter: 2009Q3

REPORT INFORMATION
  Report Type: 
  Country: None (occurrence: None)
  Receive Date: 20090715
  Receipt Date: 20090703
  Transmission Date: 20100115
  Serious: Yes (Hospitalization)
  Sender: FDA-Public Use
  Company Number: FR-ELI_LILLY_AND_COMPANY-FR200906005272

PATIENT
  Age: 42 Year
  Sex: Female

DRUGS (7)
  1. CYMBALTA [Suspect]
     Indication: PSYCHOTIC DISORDER
     Dosage: 60 MG, DAILY (1/D)
     Route: 048
     Dates: start: 20090518, end: 20090604
  2. CYMBALTA [Suspect]
     Dosage: 120 MG, DAILY (1/D)
     Route: 048
     Dates: start: 20090604, end: 20090607
  3. CYMBALTA [Suspect]
     Dosage: UNK OVERDOSE
     Dates: start: 20090608, end: 20090608
  4. CYMBALTA [Suspect]
     Dosage: 120 MG, DAILY (1/D)
     Route: 048
     Dates: start: 20090601
  5. RISPERDAL [Concomitant]
     Indication: PSYCHOTIC DISORDER
     Route: 030
  6. TERCIAN [Concomitant]
     Indication: PSYCHOTIC DISORDER
     Route: 048
  7. BENZODIAZEPINE DERIVATIVES [Concomitant]
     Indication: PSYCHOTIC DISORDER
     Route: 048

REACTIONS (4)
  - COMA [None]
  - INTENTIONAL OVERDOSE [None]
  - OFF LABEL USE [None]
  - SUICIDE ATTEMPT [None]
